FAERS Safety Report 19407706 (Version 3)
Quarter: 2022Q1

REPORT INFORMATION
  Report Type: Other
  Country: US (occurrence: US)
  Receive Date: 20210611
  Receipt Date: 20220311
  Transmission Date: 20220423
  Serious: Yes (Death, Hospitalization, Other)
  Sender: FDA-Public Use
  Company Number: US-AMAG PHARMACEUTICALS, INC.-AMAG202101084

PATIENT
  Age: 0 Year
  Sex: Male
  Weight: 1.015 kg

DRUGS (1)
  1. MAKENA [Suspect]
     Active Substance: HYDROXYPROGESTERONE CAPROATE
     Indication: Foetal exposure during pregnancy
     Dosage: 275MG/1.1ML
     Route: 064
     Dates: start: 20210113, end: 20210203

REACTIONS (3)
  - Foetal heart rate deceleration abnormality [Unknown]
  - Necrotising enterocolitis neonatal [Fatal]
  - Premature baby [Unknown]

NARRATIVE: CASE EVENT DATE: 20210221
